FAERS Safety Report 25769184 (Version 1)
Quarter: 2025Q3

REPORT INFORMATION
  Report Type: Spontaneous
  Country: US (occurrence: US)
  Receive Date: 20250905
  Receipt Date: 20250905
  Transmission Date: 20251021
  Serious: No
  Sender: MILLICENT HOLDINGS
  Company Number: US-Millicent Holdings Ltd.-MILL20250276

PATIENT
  Age: 66 Year
  Sex: Female

DRUGS (4)
  1. INTRAROSA [Suspect]
     Active Substance: PRASTERONE
     Indication: Dyspareunia
     Route: 067
  2. INTRAROSA [Suspect]
     Active Substance: PRASTERONE
     Indication: Osteoporosis
  3. ESTRADIOL TRANSDERMAL SYSTEM [Concomitant]
     Active Substance: ESTRADIOL
     Dosage: TWICE WEEKLY PATCH.
     Route: 062
  4. PROGESTERONE [Concomitant]
     Active Substance: PROGESTERONE
     Route: 048

REACTIONS (2)
  - Treatment delayed [Unknown]
  - Off label use [Unknown]

NARRATIVE: CASE EVENT DATE: 20250827
